FAERS Safety Report 4609974-7 (Version None)
Quarter: 2005Q1

REPORT INFORMATION
  Report Type: 
  Country: None (occurrence: None)
  Receive Date: 20050314
  Receipt Date: 20040521
  Transmission Date: 20050727
  Serious: Yes (Hospitalization)
  Sender: FDA-Public Use
  Company Number: 8053

PATIENT
  Age: 84 Year
  Sex: Female

DRUGS (15)
  1. AMIODARONE [Suspect]
     Indication: ARRHYTHMIA
     Dosage: 100 MG
     Route: 048
     Dates: start: 20040419
  2. FERROUS SULFATE TAB [Concomitant]
  3. THYROXINE [Concomitant]
  4. CODEINE PHOSPHATE [Concomitant]
  5. NITROGLYCERIN [Concomitant]
  6. ASPIRIN [Concomitant]
  7. CALCIUM + VITAMIN D [Concomitant]
  8. RISEDRONIC ACID [Concomitant]
  9. LANSOPRAZOLE [Concomitant]
  10. PARACETAMOL [Concomitant]
  11. QUININE SULPHATE [Concomitant]
  12. FRUSEMIDE [Concomitant]
  13. BECLOMETHASONE [Concomitant]
  14. SALBUTAMOL + IPRATROPIUM [Concomitant]
  15. PERINDOPRIL [Concomitant]

REACTIONS (1)
  - HYPOTHYROIDISM [None]
